FAERS Safety Report 8959287 (Version 2)
Quarter: 2013Q1

REPORT INFORMATION
  Report Type: Spontaneous
  Country: US (occurrence: US)
  Receive Date: 20121212
  Receipt Date: 20130101
  Transmission Date: 20140127
  Serious: No
  Sender: FDA-Public Use
  Company Number: US-BIOGENIDEC-2012BI058309

PATIENT
  Sex: Female

DRUGS (3)
  1. TYSABRI [Suspect]
     Indication: MULTIPLE SCLEROSIS
     Route: 042
     Dates: start: 20080922, end: 20101011
  2. TYSABRI [Suspect]
     Indication: MULTIPLE SCLEROSIS
     Route: 042
     Dates: start: 20120604
  3. GILENYA [Concomitant]
     Indication: MULTIPLE SCLEROSIS
     Dates: start: 2010, end: 2012

REACTIONS (2)
  - Disease progression [Unknown]
  - Drug ineffective [Unknown]
